FAERS Safety Report 8955499 (Version 1)
Quarter: 2012Q4

REPORT INFORMATION
  Report Type: Report from Study
  Country: IT (occurrence: IT)
  Receive Date: 20121207
  Receipt Date: 20121207
  Transmission Date: 20130627
  Serious: Yes (Life-Threatening, Hospitalization)
  Sender: FDA-Public Use
  Company Number: IT-BAXTER-2012BAX025715

PATIENT
  Age: 15 Year
  Sex: Female
  Weight: 50 kg

DRUGS (11)
  1. HOLOXAN [Suspect]
     Indication: SARCOMA
     Route: 042
     Dates: start: 20090209
  2. HOLOXAN [Suspect]
     Route: 042
     Dates: start: 20090730
  3. BEVACIZUMAB [Suspect]
     Indication: SARCOMA
     Route: 042
     Dates: start: 20090209
  4. BEVACIZUMAB [Suspect]
     Route: 042
     Dates: start: 20090729
  5. VINCRISTINE [Suspect]
     Indication: SARCOMA
     Route: 042
     Dates: start: 20090209
  6. VINCRISTINE [Suspect]
     Route: 042
     Dates: start: 20090729
  7. DACTINOMYCIN [Suspect]
     Indication: SARCOMA
     Route: 042
     Dates: start: 20090209
  8. DACTINOMYCIN [Suspect]
     Route: 042
     Dates: start: 20090729
  9. MESNA [Concomitant]
     Indication: DRUG USE FOR UNKNOWN INDICATION
     Route: 065
     Dates: start: 20090617, end: 20090618
  10. ZOFRAN [Concomitant]
     Indication: DRUG USE FOR UNKNOWN INDICATION
     Route: 065
     Dates: start: 20090617, end: 20090618
  11. SOLDESAM [Concomitant]
     Indication: DRUG USE FOR UNKNOWN INDICATION
     Route: 065
     Dates: start: 20090617, end: 20090618

REACTIONS (1)
  - Ventricular arrhythmia [Recovered/Resolved]
